FAERS Safety Report 18154205 (Version 4)
Quarter: 2020Q3

REPORT INFORMATION
  Report Type: Report from Study
  Country: None (occurrence: ES)
  Receive Date: 20200816
  Receipt Date: 20200826
  Transmission Date: 20201103
  Serious: Yes (Death, Hospitalization, Other)
  Sender: FDA-Public Use
  Company Number: ES-ABBVIE-20K-144-3525747-00

PATIENT
  Age: 75 Year
  Sex: Male
  Weight: 72 kg

DRUGS (3)
  1. RIVOTRIL [Suspect]
     Active Substance: CLONAZEPAM
     Indication: PRODUCT USED FOR UNKNOWN INDICATION
     Route: 065
  2. DUODOPA [Suspect]
     Active Substance: CARBIDOPA\LEVODOPA
  3. DUODOPA [Suspect]
     Active Substance: CARBIDOPA\LEVODOPA
     Indication: PARKINSON^S DISEASE
     Route: 050
     Dates: start: 20171207

REACTIONS (9)
  - Blood potassium decreased [Unknown]
  - Vitamin B12 decreased [Unknown]
  - Epilepsy [Fatal]
  - Medical induction of coma [Unknown]
  - Platelet count decreased [Unknown]
  - COVID-19 [Recovered/Resolved]
  - White blood cell count increased [Unknown]
  - Respiratory tract infection [Not Recovered/Not Resolved]
  - Somnolence [Unknown]

NARRATIVE: CASE EVENT DATE: 2020
